FAERS Safety Report 8190802-0 (Version None)
Quarter: 2012Q1

REPORT INFORMATION
  Report Type: 
  Country: None (occurrence: None)
  Receive Date: 20120305
  Receipt Date: 20120217
  Transmission Date: 20120608
  Serious: Yes (Hospitalization)
  Sender: FDA-Public Use
  Company Number: DSA_48254_2011

PATIENT
  Sex: Female

DRUGS (5)
  1. XENAZINE [Suspect]
     Indication: DYSKINESIA
     Dosage: (25 MG BID ORAL)
     Route: 048
     Dates: start: 20071001, end: 20100301
  2. EXELON [Suspect]
     Indication: COGNITIVE DISORDER
     Dosage: (9.5 MG QD TRANSDERMAL)
     Route: 062
     Dates: start: 20110901, end: 20111001
  3. DITROPAN [Suspect]
     Indication: PRODUCT USED FOR UNKNOWN INDICATION
     Dosage: (5 MG TID ORAL)
     Route: 048
     Dates: start: 20071101, end: 20111001
  4. AZILECT [Suspect]
     Indication: PARKINSONISM
     Dosage: (30 MG QD ORAL)
     Route: 048
     Dates: start: 20110701, end: 20111001
  5. CYMBALTA [Suspect]
     Indication: PRODUCT USED FOR UNKNOWN INDICATION
     Dosage: (120 MG, 60MG IN THE MORNING AND 60MG IN THE EVENING ORAL)
     Route: 048
     Dates: start: 20091101, end: 20111001

REACTIONS (6)
  - CEREBRAL ATROPHY [None]
  - COGNITIVE DISORDER [None]
  - CONFUSIONAL STATE [None]
  - PARKINSONISM [None]
  - LEUKOENCEPHALOPATHY [None]
  - IATROGENIC INJURY [None]
